FAERS Safety Report 10870028 (Version 2)
Quarter: 2021Q1

REPORT INFORMATION
  Report Type: Spontaneous
  Country: CA (occurrence: CA)
  Receive Date: 20150226
  Receipt Date: 20210131
  Transmission Date: 20210419
  Serious: Yes (Other)
  Sender: FDA-Public Use
  Company Number: CA-PURDUE PHARMA-CAN-2015-0005583

PATIENT
  Sex: Male

DRUGS (6)
  1. OXYCONTIN [Suspect]
     Active Substance: OXYCODONE HYDROCHLORIDE
     Indication: BACK PAIN
     Dosage: 80 MG, 19 TIMES A DAY (1520 MG DAILY)
     Route: 048
  2. OXYCONTIN [Suspect]
     Active Substance: OXYCODONE HYDROCHLORIDE
     Dosage: 40 MG, TID
     Route: 048
  3. OXYCONTIN [Suspect]
     Active Substance: OXYCODONE HYDROCHLORIDE
     Dosage: 20 MG, BID
     Route: 048
     Dates: start: 2005
  4. OXYCONTIN [Suspect]
     Active Substance: OXYCODONE HYDROCHLORIDE
     Dosage: UNK
     Route: 048
  5. OXYCODONE HYDROCHLORIDE. [Suspect]
     Active Substance: OXYCODONE HYDROCHLORIDE
     Indication: BACK PAIN
     Dosage: UNK
     Route: 048
  6. OXYCODONE [Suspect]
     Active Substance: OXYCODONE
     Indication: BACK PAIN
     Dosage: 20 MG, 17 TIMES DAILY (340 MG DAILY)
     Route: 065

REACTIONS (18)
  - Depression [Not Recovered/Not Resolved]
  - Pain in extremity [Unknown]
  - Drug dependence [Unknown]
  - Insomnia [Unknown]
  - Anxiety [Not Recovered/Not Resolved]
  - Mobility decreased [Unknown]
  - Social problem [Unknown]
  - Loss of personal independence in daily activities [Unknown]
  - Emotional distress [Unknown]
  - Economic problem [Unknown]
  - Vomiting [Unknown]
  - General physical health deterioration [Unknown]
  - Anhedonia [Unknown]
  - Off label use [Unknown]
  - Mental disorder [Unknown]
  - Nausea [Unknown]
  - Diarrhoea [Unknown]
  - Drug withdrawal syndrome [Unknown]
